FAERS Safety Report 9709276 (Version 1)
Quarter: 2013Q4

REPORT INFORMATION
  Report Type: Spontaneous
  Country: RS (occurrence: RS)
  Receive Date: 20131125
  Receipt Date: 20131125
  Transmission Date: 20140711
  Serious: Yes (Hospitalization)
  Sender: FDA-Public Use
  Company Number: RS-ROXANE LABORATORIES, INC.-2013-RO-01854RO

PATIENT
  Sex: Female

DRUGS (2)
  1. DIAZEPAM [Suspect]
     Dosage: 150 MG
  2. VERAPAMIL [Suspect]
     Dosage: 5.6 G

REACTIONS (2)
  - Toxicity to various agents [Unknown]
  - Overdose [Unknown]
